FAERS Safety Report 9961606 (Version 2)
Quarter: 2014Q1

REPORT INFORMATION
  Report Type: Report from Study
  Country: US (occurrence: US)
  Receive Date: 20140305
  Receipt Date: 20140305
  Transmission Date: 20141002
  Serious: Yes (Hospitalization)
  Sender: FDA-Public Use
  Company Number: US-ABBVIE-13P-163-1112769-00

PATIENT
  Age: 46 Year
  Sex: Female

DRUGS (21)
  1. HUMIRA [Suspect]
     Indication: CROHN^S DISEASE
     Dates: start: 20130415
  2. COUMADIN [Suspect]
     Indication: PRODUCT USED FOR UNKNOWN INDICATION
  3. METHOTREXATE [Concomitant]
     Indication: PROPHYLAXIS
     Dosage: WEEKLY ON FRIDAYS
     Dates: start: 20130412
  4. METHOTREXATE [Concomitant]
     Indication: ADVERSE DRUG REACTION
  5. CRESTOR [Concomitant]
     Indication: BLOOD CHOLESTEROL
  6. CELEXA [Concomitant]
     Indication: ANXIETY
  7. FOLIC ACID [Concomitant]
     Indication: CROHN^S DISEASE
  8. ACYCLOVIR [Concomitant]
     Indication: GENITAL HERPES
  9. KLOR-CON [Concomitant]
     Indication: CROHN^S DISEASE
  10. LOSARTAN [Concomitant]
     Indication: HYPERTENSION
  11. MAGOXIDE [Concomitant]
     Indication: CROHN^S DISEASE
  12. VITAMIN B-12 [Concomitant]
     Indication: CROHN^S DISEASE
  13. HUMALOG [Concomitant]
     Indication: PRODUCT USED FOR UNKNOWN INDICATION
     Dosage: SHORT ACTING/SLIDING SCALE, 3 TO 4 TIMES PER DAY
  14. LANTUS [Concomitant]
     Indication: PRODUCT USED FOR UNKNOWN INDICATION
     Dosage: LONG ACTING, AT BEDTIME
  15. NORCO [Concomitant]
     Indication: POSTOPERATIVE ANALGESIA
     Dosage: 5-325MG, 1 TO 2 AT BEDTIME, AS NEEDED
  16. NORCO [Concomitant]
     Indication: THORACOTOMY
  17. XANAX [Concomitant]
     Indication: INSOMNIA
     Dosage: AT BEDTIME
  18. OXYGEN [Concomitant]
     Indication: PRODUCT USED FOR UNKNOWN INDICATION
     Dosage: 4 TO 6 LITERS DURING THE DAY
  19. OXYGEN [Concomitant]
     Dosage: WITH CPAP AT BEDTIME
  20. PREDNISONE [Concomitant]
     Indication: CROHN^S DISEASE
  21. PREDNISONE [Concomitant]
     Indication: LUNG DISORDER

REACTIONS (6)
  - Pulmonary embolism [Not Recovered/Not Resolved]
  - International normalised ratio increased [Unknown]
  - Feeling abnormal [Unknown]
  - Insomnia [Unknown]
  - Dizziness [Unknown]
  - Blood disorder [Unknown]
